FAERS Safety Report 10345807 (Version 1)
Quarter: 2014Q3

REPORT INFORMATION
  Report Type: Spontaneous
  Country: IT (occurrence: IT)
  Receive Date: 20140728
  Receipt Date: 20140728
  Transmission Date: 20150326
  Serious: Yes (Hospitalization)
  Sender: FDA-Public Use
  Company Number: PHHY2014IT091074

PATIENT
  Sex: Male

DRUGS (9)
  1. TIZANIDINE [Suspect]
     Active Substance: TIZANIDINE
     Indication: DYSTONIA
     Dosage: 12 MG, PER DAY
  2. LEVODOPA [Concomitant]
     Active Substance: LEVODOPA
  3. THIOPENTONE [Suspect]
     Active Substance: THIOPENTAL SODIUM
     Indication: DYSTONIA
  4. PROPOFOL. [Suspect]
     Active Substance: PROPOFOL
     Indication: DYSTONIA
  5. BACLOFEN. [Suspect]
     Active Substance: BACLOFEN
     Indication: DYSTONIA
     Dosage: 10 MG, PER DAY
     Route: 048
  6. DIAZEPAM. [Suspect]
     Active Substance: DIAZEPAM
     Indication: DYSTONIA
  7. CLONAZEPAM. [Suspect]
     Active Substance: CLONAZEPAM
     Indication: DYSTONIA
  8. MIDAZOLAM [Suspect]
     Active Substance: MIDAZOLAM\MIDAZOLAM HYDROCHLORIDE
  9. TETRABENAZINE [Suspect]
     Active Substance: TETRABENAZINE
     Indication: DYSTONIA
     Dosage: 2 MG, PER DAY

REACTIONS (6)
  - Clonus [Unknown]
  - Respiratory distress [Unknown]
  - No therapeutic response [Unknown]
  - Opisthotonus [Unknown]
  - Dystonia [Unknown]
  - Tremor [Unknown]
